FAERS Safety Report 8982376 (Version 1)
Quarter: 2012Q4

REPORT INFORMATION
  Report Type: 
  Country: US (occurrence: US)
  Receive Date: 20121222
  Receipt Date: 20121222
  Transmission Date: 20130627
  Serious: Yes (Hospitalization)
  Sender: FDA-Public Use
  Company Number: US-B.I. PHARMACEUTICALS,INC./RIDGEFIELD-2012-BI-03640BP

PATIENT
  Age: 87 Year
  Sex: Male
  Weight: 64 kg

DRUGS (3)
  1. PRADAXA [Suspect]
     Indication: ATRIAL FIBRILLATION
     Dosage: 300 mg
     Route: 048
     Dates: start: 2010
  2. AMLODIPINE [Concomitant]
     Indication: ATRIAL FIBRILLATION
     Dosage: 5 mg
     Route: 048
     Dates: start: 2008
  3. VITAMIN D [Concomitant]
     Route: 048

REACTIONS (1)
  - Pulmonary mass [Recovered/Resolved]
